FAERS Safety Report 6784974-X (Version None)
Quarter: 2010Q2

REPORT INFORMATION
  Report Type: 
  Country: None (occurrence: None)
  Receive Date: 20100618
  Receipt Date: 20100603
  Transmission Date: 20101027
  Serious: Yes (Death)
  Sender: FDA-Public Use
  Company Number: DSA_43288_2010

PATIENT
  Age: 74 Year
  Sex: Male

DRUGS (1)
  1. TILDIEM (TILDIEM - DILTIAZEM HYDROCHLORIDE) 300 MG (NOT SPECIFIED) [Suspect]
     Indication: DRUG USE FOR UNKNOWN INDICATION
     Dosage: 300 MG 1 X ORAL
     Route: 048
     Dates: start: 20070913, end: 20070913

REACTIONS (2)
  - BLOOD PRESSURE DECREASED [None]
  - MALAISE [None]
